FAERS Safety Report 18791292 (Version 1)
Quarter: 2021Q1

REPORT INFORMATION
  Report Type: Spontaneous
  Country: IN (occurrence: IN)
  Receive Date: 20210126
  Receipt Date: 20210126
  Transmission Date: 20210419
  Serious: Yes (Death)
  Sender: FDA-Public Use
  Company Number: IN-PFIZER INC-2021035873

PATIENT
  Age: 59 Year
  Sex: Male

DRUGS (6)
  1. INLYTA [Suspect]
     Active Substance: AXITINIB
     Indication: METASTATIC RENAL CELL CARCINOMA
     Dosage: 5 MG, 2X/DAY
     Route: 048
     Dates: start: 20191102, end: 20210119
  2. DOLO 650 [Concomitant]
     Indication: PYREXIA
     Dosage: 650 MG 1?0?1 FOR 3 DAYS
  3. DOLO 650 [Concomitant]
     Indication: PAIN
     Dosage: 1 TAB AS NEEDED
  4. RAZO [Concomitant]
     Dosage: 1?0?0 FOR 5 DAYS
  5. BECOSULES [ASCORBIC ACID;BIOTIN;CALCIUM PANTOTHENATE;CYANOCOBALAMIN;FO [Concomitant]
  6. LOPERAMIDE [Concomitant]
     Active Substance: LOPERAMIDE
     Indication: DIARRHOEA
     Dosage: 1 SOS

REACTIONS (2)
  - Death [Fatal]
  - Mouth ulceration [Unknown]
